FAERS Safety Report 4850856-3 (Version None)
Quarter: 2005Q4

REPORT INFORMATION
  Report Type: 
  Country: None (occurrence: None)
  Receive Date: 20051212
  Receipt Date: 20051010
  Transmission Date: 20060501
  Serious: Yes (Hospitalization)
  Sender: FDA-Public Use
  Company Number: 2005CG01675

PATIENT
  Age: 89 Year
  Sex: Female

DRUGS (5)
  1. ARIMIDEX [Suspect]
     Indication: BREAST CANCER
     Route: 048
     Dates: start: 20041101, end: 20050516
  2. NOLVADEX [Concomitant]
     Indication: BREAST CANCER
     Dates: end: 20041031
  3. NORSET [Concomitant]
     Indication: DEPRESSION
     Route: 048
  4. DIFRAREL [Concomitant]
     Indication: RETINAL VEIN THROMBOSIS
     Route: 048
  5. KARDEGIC [Concomitant]
     Indication: RETINAL VEIN THROMBOSIS
     Route: 048

REACTIONS (3)
  - DERMATITIS [None]
  - ECZEMA [None]
  - RASH PAPULAR [None]
